FAERS Safety Report 8875165 (Version 1)
Quarter: 2012Q4

REPORT INFORMATION
  Report Type: 
  Country: US (occurrence: US)
  Receive Date: 20121023
  Receipt Date: 20121023
  Transmission Date: 20130627
  Serious: Yes (Other)
  Sender: FDA-Public Use
  Company Number: US-ROCHE-1135765

PATIENT
  Sex: Female

DRUGS (2)
  1. RAPTIVA [Suspect]
     Indication: PSORIASIS
     Route: 065
  2. ENBREL [Concomitant]
     Indication: PSORIASIS

REACTIONS (7)
  - Vaginal haemorrhage [Unknown]
  - Skin exfoliation [Unknown]
  - Skin exfoliation [Unknown]
  - Pain [Unknown]
  - Skin burning sensation [Unknown]
  - Pruritus [Unknown]
  - Disease progression [Unknown]
